FAERS Safety Report 9129869 (Version 1)
Quarter: 2013Q1

REPORT INFORMATION
  Report Type: Spontaneous
  Country: US (occurrence: US)
  Receive Date: 20130228
  Receipt Date: 20130228
  Transmission Date: 20140127
  Serious: Yes (Other)
  Sender: FDA-Public Use
  Company Number: US-009507513-1302USA012392

PATIENT
  Age: 84 Year
  Sex: Male

DRUGS (14)
  1. SINGULAIR [Suspect]
  2. ACETAMINOPHEN [Concomitant]
  3. ESIDRIX [Concomitant]
  4. ZOLOFT [Concomitant]
  5. HALDOL [Concomitant]
  6. MYCOSTATIN [Concomitant]
  7. AMLODIPINE [Concomitant]
  8. [THERAPY UNSPECIFIED] [Concomitant]
  9. ASPIRIN [Concomitant]
  10. CALCIPARINE [Concomitant]
  11. FERINJECT [Concomitant]
  12. BETASERC [Concomitant]
  13. ROCEPHIN [Concomitant]
  14. NEXIUM [Concomitant]

REACTIONS (3)
  - Gamma-glutamyltransferase increased [Unknown]
  - Cholestatic liver injury [Unknown]
  - Blood alkaline phosphatase increased [Unknown]
